FAERS Safety Report 4987088-4 (Version None)
Quarter: 2006Q2

REPORT INFORMATION
  Report Type: 
  Country: None (occurrence: None)
  Receive Date: 20060501
  Receipt Date: 20060420
  Transmission Date: 20061013
  Serious: Yes (Other)
  Sender: FDA-Public Use
  Company Number: JP-JPN-A200601334

PATIENT
  Age: 84 Year
  Sex: Female

DRUGS (4)
  1. ZANTAC [Suspect]
     Indication: GASTRITIS
     Dosage: 150MG PER DAY
     Route: 048
     Dates: start: 20060327, end: 20060416
  2. MOBIC [Concomitant]
     Indication: BACK PAIN
     Dosage: 5MG TWICE PER DAY
     Route: 048
     Dates: start: 20050204
  3. MUCOSTA [Concomitant]
     Indication: GASTRITIS
     Dosage: 100MG TWICE PER DAY
     Route: 048
     Dates: start: 20051114
  4. GLAKAY [Concomitant]
     Indication: OSTEOPOROSIS
     Dosage: 15MG THREE TIMES PER DAY
     Route: 048
     Dates: start: 20060116

REACTIONS (1)
  - DEPRESSED LEVEL OF CONSCIOUSNESS [None]
